FAERS Safety Report 23644653 (Version 1)
Quarter: 2024Q1

REPORT INFORMATION
  Report Type: Spontaneous
  Country: US (occurrence: US)
  Receive Date: 20240318
  Receipt Date: 20240318
  Transmission Date: 20240409
  Serious: No
  Sender: FDA-Public Use
  Company Number: US-Calliditas-2024CAL00418

PATIENT
  Age: 73 Year
  Sex: Male
  Weight: 81.2 kg

DRUGS (1)
  1. TARPEYO [Suspect]
     Active Substance: BUDESONIDE
     Indication: IgA nephropathy
     Dosage: 16 MG (4MG CAPSULES) ONCE DAILY
     Route: 048
     Dates: start: 20240309

REACTIONS (3)
  - Diarrhoea [Unknown]
  - Product residue present [Unknown]
  - Blood pressure increased [Unknown]
